FAERS Safety Report 7811564-X (Version None)
Quarter: 2011Q4

REPORT INFORMATION
  Report Type: 
  Country: None (occurrence: None)
  Receive Date: 20111013
  Receipt Date: 20111007
  Transmission Date: 20120403
  Serious: Yes (Death, Other)
  Sender: FDA-Public Use
  Company Number: TW-PFIZER INC-2011239400

PATIENT
  Sex: Male

DRUGS (2)
  1. SUTENT [Suspect]
     Indication: GASTROINTESTINAL STROMAL TUMOUR
     Dosage: 3 TABS, 1X/DAY
     Dates: start: 20100101
  2. SUTENT [Suspect]
     Dosage: ONE TAB BEFORE BREAKFAST EVERY MORNING
     Dates: start: 20090101, end: 20100101

REACTIONS (3)
  - DEATH [None]
  - HAEMATEMESIS [None]
  - RENAL IMPAIRMENT [None]
